FAERS Safety Report 4972990-X (Version None)
Quarter: 2006Q2

REPORT INFORMATION
  Report Type: 
  Country: None (occurrence: None)
  Receive Date: 20060414
  Receipt Date: 20060410
  Transmission Date: 20061013
  Serious: Yes (Other)
  Sender: FDA-Public Use
  Company Number: US-GLAXOSMITHKLINE-A0601730A

PATIENT
  Age: 19 Year
  Sex: Female

DRUGS (3)
  1. LAMICTAL [Suspect]
     Indication: EPILEPSY
     Dosage: 500MG PER DAY
     Route: 048
  2. TOPAMAX [Concomitant]
     Dosage: 25MG PER DAY
  3. FOLIC ACID [Concomitant]

REACTIONS (1)
  - ABORTION INDUCED [None]
